FAERS Safety Report 10219046 (Version 3)
Quarter: 2014Q2

REPORT INFORMATION
  Report Type: Spontaneous
  Country: US (occurrence: US)
  Receive Date: 20140605
  Receipt Date: 20140619
  Transmission Date: 20141212
  Serious: No
  Sender: FDA-Public Use
  Company Number: US-PFIZER INC-2014148096

PATIENT
  Age: 77 Year
  Sex: Male
  Weight: 65.76 kg

DRUGS (2)
  1. LYRICA [Suspect]
     Indication: SPINAL COLUMN STENOSIS
     Dosage: 75 MG, 2X/DAY
     Route: 048
     Dates: start: 20140501, end: 20140530
  2. LYRICA [Suspect]
     Indication: NEURALGIA
     Dosage: 75 MG, DAILY
     Dates: start: 201405, end: 201405

REACTIONS (2)
  - Urticaria [Unknown]
  - Pigmentation disorder [Recovered/Resolved]
